FAERS Safety Report 18571286 (Version 1)
Quarter: 2020Q4

REPORT INFORMATION
  Report Type: Spontaneous
  Country: US (occurrence: US)
  Receive Date: 20201202
  Receipt Date: 20201202
  Transmission Date: 20210114
  Serious: Yes (Hospitalization, Disabling, Other)
  Sender: FDA-Public Use
  Company Number: US-PURDUE-USA-2020-0179190

PATIENT
  Sex: Male

DRUGS (8)
  1. HYDROCODONE BITARTRATE AND ACETAMINOPHEN [Suspect]
     Active Substance: ACETAMINOPHEN\HYDROCODONE BITARTRATE
     Indication: PRODUCT USED FOR UNKNOWN INDICATION
     Route: 048
  2. OXYCONTIN [Suspect]
     Active Substance: OXYCODONE HYDROCHLORIDE
     Indication: PRODUCT USED FOR UNKNOWN INDICATION
     Dosage: 80 MG, BID
     Route: 048
  3. DILAUDID [Suspect]
     Active Substance: HYDROMORPHONE HYDROCHLORIDE
     Indication: PRODUCT USED FOR UNKNOWN INDICATION
     Route: 048
  4. OXYCODONE/ ACETAMINOPHEN TABLETS [Suspect]
     Active Substance: ACETAMINOPHEN\OXYCODONE HYDROCHLORIDE
     Indication: PRODUCT USED FOR UNKNOWN INDICATION
     Route: 048
  5. DILAUDID [Suspect]
     Active Substance: HYDROMORPHONE HYDROCHLORIDE
     Indication: PRODUCT USED FOR UNKNOWN INDICATION
     Route: 042
  6. BUPRENORPHINE TRANSDERMAL PATCH (SIMILAR TO NDA 21-306) [Suspect]
     Active Substance: BUPRENORPHINE
     Indication: PRODUCT USED FOR UNKNOWN INDICATION
     Route: 062
  7. OXYCONTIN [Suspect]
     Active Substance: OXYCODONE HYDROCHLORIDE
     Dosage: 160 MG, BID
     Route: 048
  8. METHADONE [Suspect]
     Active Substance: METHADONE HYDROCHLORIDE
     Indication: PRODUCT USED FOR UNKNOWN INDICATION
     Route: 065

REACTIONS (32)
  - Asthenia [Unknown]
  - Irritability [Unknown]
  - Cardiac disorder [Unknown]
  - Mental impairment [Unknown]
  - Diarrhoea [Unknown]
  - Eating disorder [Unknown]
  - Hypogonadism [Unknown]
  - Disability [Unknown]
  - Sleep disorder [Unknown]
  - Thinking abnormal [Unknown]
  - Blood testosterone decreased [Recovered/Resolved]
  - Upper limb fracture [Unknown]
  - Pain [Unknown]
  - Depression [Unknown]
  - Anxiety [Unknown]
  - Malaise [Unknown]
  - Overdose [Unknown]
  - Suicidal ideation [Unknown]
  - Hip fracture [Unknown]
  - Emotional distress [Unknown]
  - Injury [Unknown]
  - Fall [Unknown]
  - Drug dependence [Unknown]
  - Thoracic vertebral fracture [Unknown]
  - Withdrawal syndrome [Unknown]
  - General physical health deterioration [Unknown]
  - Obsessive thoughts [Unknown]
  - Dental care [Unknown]
  - Drug withdrawal convulsions [Unknown]
  - Mobility decreased [Unknown]
  - Testicular atrophy [Unknown]
  - Feeling guilty [Unknown]

NARRATIVE: CASE EVENT DATE: 2012
